FAERS Safety Report 6147113-4 (Version None)
Quarter: 2009Q2

REPORT INFORMATION
  Report Type: 
  Country: None (occurrence: None)
  Receive Date: 20090402
  Receipt Date: 20090311
  Transmission Date: 20091009
  Serious: Yes (Death, Hospitalization)
  Sender: FDA-Public Use
  Company Number: BAYER CASE ID: 200828897GPV

PATIENT
  Age: 52 Year
  Sex: Female

DRUGS (6)
  1. FLUDARA [Suspect]
     Indication: CHRONIC LYMPHOCYTIC LEUKAEMIA
     Dosage: 70 MG, ORAL
     Route: 048
     Dates: start: 20080616, end: 20080618
  2. FLUDARA [Suspect]
     Indication: CHRONIC LYMPHOCYTIC LEUKAEMIA
     Dosage: 70 MG, ORAL
     Route: 048
     Dates: start: 20080114
  3. MABCAMPATH (ALEMTUXUMAB) [Suspect]
     Indication: CHRONIC LYMPHOCYTIC LEUKAEMIA
     Dosage: 30 MG, SUBCUTANEOUS
     Route: 058
     Dates: start: 20080616, end: 20080618
  4. MABCAMPATH (ALEMTUXUMAB) [Suspect]
     Indication: CHRONIC LYMPHOCYTIC LEUKAEMIA
     Dosage: 30 MG, SUBCUTANEOUS
     Route: 058
     Dates: start: 20080114
  5. CYCLOPHOSPHAMIDE [Suspect]
     Indication: CHRONIC LYMPHOCYTIC LEUKAEMIA
     Dosage: 450 MG, ORAL
     Route: 048
     Dates: start: 20080616, end: 20080618
  6. CYCLOPHOSPHAMIDE [Suspect]
     Indication: CHRONIC LYMPHOCYTIC LEUKAEMIA
     Dosage: 450 MG, ORAL
     Route: 048
     Dates: start: 20080114

REACTIONS (10)
  - AUTOIMMUNE THROMBOCYTOPENIA [None]
  - BONE MARROW FAILURE [None]
  - BRONCHOPNEUMONIA [None]
  - IMMUNODEFICIENCY [None]
  - MEGAKARYOCYTES INCREASED [None]
  - PANCYTOPENIA [None]
  - PNEUMOCYSTIS JIROVECI PNEUMONIA [None]
  - SEPTIC SHOCK [None]
  - STAPHYLOCOCCAL SEPSIS [None]
  - WEIGHT DECREASED [None]
